FAERS Safety Report 7731885-9 (Version None)
Quarter: 2011Q3

REPORT INFORMATION
  Report Type: 
  Country: None (occurrence: None)
  Receive Date: 20110906
  Receipt Date: 20110712
  Transmission Date: 20111222
  Serious: No
  Sender: FDA-Public Use
  Company Number: US-AMGEN-USASP2011035443

PATIENT
  Age: 69 Year
  Sex: Female

DRUGS (18)
  1. ZETIA [Concomitant]
     Dosage: 1 MG, QD
  2. FOLIC ACID [Concomitant]
     Dosage: UNK
  3. INDAPAMIDE [Concomitant]
     Dosage: 1 MG, QD
  4. PREDNISONE [Concomitant]
     Dosage: 1 MG, QD
  5. MULTIVITAMIN                       /00097801/ [Concomitant]
     Dosage: UNK UNK, QD
  6. TYLENOL (CAPLET) [Concomitant]
     Dosage: UNK
  7. CALCIUM 600 PLUS VITAMIN D [Concomitant]
     Dosage: UNK UNK, QD
  8. OMEPRAZOLE [Concomitant]
     Dosage: 1 MG, QD
  9. PROLIA [Suspect]
     Indication: OSTEOARTHRITIS
     Dosage: 60 MG, Q6MO
     Dates: start: 20110101
  10. VITAMIN D [Concomitant]
     Dosage: 1 IU, QD
  11. AVAPRO [Concomitant]
     Dosage: 1 MG, QD
  12. PREDNISONE [Concomitant]
  13. METFORMIN HCL [Concomitant]
     Dosage: 1 MG, BID
  14. TRAMADOL HYDROCHLORIDE [Concomitant]
     Dosage: 1 MG, TID
  15. PRAVASTATIN [Concomitant]
     Dosage: 1 MG, QD
  16. VESICARE [Concomitant]
     Dosage: 1 MG, QD
  17. HYDROCODONE [Concomitant]
     Dosage: UNK
  18. LABETALOL HCL [Concomitant]
     Dosage: UNK UNK, BID

REACTIONS (2)
  - JOINT INJURY [None]
  - ARTHRALGIA [None]
